FAERS Safety Report 20320637 (Version 1)
Quarter: 2022Q1

REPORT INFORMATION
  Report Type: Report from Study
  Country: IT (occurrence: IT)
  Receive Date: 20220111
  Receipt Date: 20220111
  Transmission Date: 20220423
  Serious: Yes (Other)
  Sender: FDA-Public Use
  Company Number: None

PATIENT
  Age: 1 Year
  Sex: Female
  Weight: 9 kg

DRUGS (1)
  1. MENINGOCOCCAL GROUP B VACCINE [Suspect]
     Active Substance: MENINGOCOCCAL GROUP B VACCINE
     Indication: Prophylaxis
     Dosage: 1 DF
     Route: 030
     Dates: start: 20211118

REACTIONS (7)
  - Febrile convulsion [Recovered/Resolved]
  - Respiratory arrest [Recovered/Resolved]
  - Somnolence [Recovered/Resolved]
  - Salivary hypersecretion [Recovered/Resolved]
  - Trismus [Recovered/Resolved]
  - Muscle rigidity [Recovered/Resolved]
  - Slow response to stimuli [Recovered/Resolved]

NARRATIVE: CASE EVENT DATE: 20211118
